FAERS Safety Report 21816432 (Version 1)
Quarter: 2023Q1

REPORT INFORMATION
  Report Type: Spontaneous
  Country: US (occurrence: None)
  Receive Date: 20230103
  Receipt Date: 20230103
  Transmission Date: 20230418
  Serious: No
  Sender: FDA-Public Use
  Company Number: None

PATIENT
  Age: 60 Year
  Sex: Female

DRUGS (1)
  1. DUPIXENT [Suspect]
     Active Substance: DUPILUMAB
     Indication: Asthma
     Dosage: 300MG EVERY OTHER WEEK SQ?
     Route: 058
     Dates: start: 202210

REACTIONS (3)
  - Device defective [None]
  - Incorrect dose administered [None]
  - Needle issue [None]

NARRATIVE: CASE EVENT DATE: 20221230
